FAERS Safety Report 6447585-1 (Version None)
Quarter: 2009Q4

REPORT INFORMATION
  Report Type: 
  Country: None (occurrence: None)
  Receive Date: 20091119
  Receipt Date: 20090311
  Transmission Date: 20100525
  Serious: Yes (Hospitalization)
  Sender: FDA-Public Use
  Company Number: US-AMGEN-KDL333721

PATIENT
  Sex: Female
  Weight: 69 kg

DRUGS (9)
  1. ENBREL [Suspect]
     Indication: RHEUMATOID ARTHRITIS
     Route: 058
     Dates: start: 20040527, end: 20090208
  2. METHOTREXATE [Concomitant]
     Dates: start: 20000706
  3. DURAGESIC-100 [Concomitant]
     Dates: start: 20081022
  4. PREDNISONE [Concomitant]
     Dates: start: 20000706
  5. CELEBREX [Concomitant]
     Dates: start: 20000706
  6. SYNTHROID [Concomitant]
     Dates: start: 20000706
  7. VICODIN [Concomitant]
     Dates: start: 20001127
  8. ZOLOFT [Concomitant]
     Dates: start: 20020423
  9. TENORMIN [Concomitant]
     Dates: start: 20000706

REACTIONS (1)
  - URINARY TRACT INFECTION [None]
